FAERS Safety Report 7772763-9 (Version None)
Quarter: 2011Q3

REPORT INFORMATION
  Report Type: 
  Country: None (occurrence: None)
  Receive Date: 20110922
  Receipt Date: 20101025
  Transmission Date: 20111222
  Serious: No
  Sender: FDA-Public Use
  Company Number: US-ASTRAZENECA-2010SE50638

PATIENT
  Sex: Female
  Weight: 68 kg

DRUGS (7)
  1. ACTIVAN [Concomitant]
     Indication: AGITATION
     Route: 065
  2. BIRTH CONTROL [Concomitant]
     Indication: MENORRHAGIA
     Route: 065
  3. THYROID TAB [Concomitant]
     Indication: THYROID DISORDER
     Route: 065
  4. ACTIVAN [Concomitant]
     Indication: AUTISM
     Route: 065
  5. REMORAN [Concomitant]
     Indication: AUTISM
     Route: 065
  6. SEROQUEL [Suspect]
     Indication: AUTISM
     Route: 048
  7. DEPAKOTE SPRINGLES [Concomitant]
     Indication: CONVULSION
     Route: 065

REACTIONS (3)
  - ANGER [None]
  - PSYCHOMOTOR HYPERACTIVITY [None]
  - ABNORMAL BEHAVIOUR [None]
